FAERS Safety Report 13313733 (Version 1)
Quarter: 2017Q1

REPORT INFORMATION
  Report Type: Spontaneous
  Country: US (occurrence: US)
  Receive Date: 20170309
  Receipt Date: 20170309
  Transmission Date: 20170428
  Serious: No
  Sender: FDA-Public Use
  Company Number: US-TURING PHARMACEUTICALS-2016TNG00013

PATIENT
  Age: 31 Year
  Sex: Male
  Weight: 81.63 kg

DRUGS (6)
  1. PREDNISONE. [Concomitant]
     Active Substance: PREDNISONE
     Indication: TOXOPLASMOSIS
     Dosage: 3 TABLETS, 1X/DAY
     Route: 048
     Dates: start: 20160408
  2. PREDNISONE. [Concomitant]
     Active Substance: PREDNISONE
     Dosage: 4 TABLETS, 1X/DAY
     Route: 048
     Dates: start: 20160401, end: 20160408
  3. BACTRIM DS [Concomitant]
     Active Substance: SULFAMETHOXAZOLE\TRIMETHOPRIM
     Indication: TOXOPLASMOSIS
     Dosage: 1 TABLETS, 2X/DAY
     Route: 048
     Dates: start: 20160315
  4. DARAPRIM [Suspect]
     Active Substance: PYRIMETHAMINE
     Indication: TOXOPLASMOSIS
     Dosage: 1 TABLETS, 2X/DAY
     Route: 048
     Dates: start: 20160317
  5. PREDNISONE. [Concomitant]
     Active Substance: PREDNISONE
     Dosage: 5 TABLETS, 1X/DAY
     Route: 048
     Dates: start: 20160325, end: 20160331
  6. PREDNISONE. [Concomitant]
     Active Substance: PREDNISONE
     Dosage: 6 TABLETS, 1X/DAY
     Route: 048
     Dates: start: 20160318, end: 20160324

REACTIONS (4)
  - Dysphonia [Recovering/Resolving]
  - Fatigue [Not Recovered/Not Resolved]
  - Chills [Recovering/Resolving]
  - Hyperhidrosis [Recovering/Resolving]

NARRATIVE: CASE EVENT DATE: 20160317
